FAERS Safety Report 14363630 (Version 1)
Quarter: 2018Q1

REPORT INFORMATION
  Report Type: Report from Study
  Country: None (occurrence: US)
  Receive Date: 20180108
  Receipt Date: 20180108
  Transmission Date: 20180509
  Serious: Yes (Hospitalization)
  Sender: FDA-Public Use
  Company Number: US-ABBVIE-18P-163-2212472-00

PATIENT
  Age: 62 Year
  Sex: Female

DRUGS (5)
  1. METOPROLOL. [Concomitant]
     Active Substance: METOPROLOL
     Indication: TACHYCARDIA
     Route: 065
  2. ZOFRAN [Concomitant]
     Active Substance: ONDANSETRON HYDROCHLORIDE
     Indication: PRODUCT USED FOR UNKNOWN INDICATION
     Route: 065
  3. MARINOL [Suspect]
     Active Substance: DRONABINOL
     Indication: CYCLIC VOMITING SYNDROME
     Route: 048
     Dates: start: 2013
  4. TOPIRAMATE. [Concomitant]
     Active Substance: TOPIRAMATE
     Indication: CYCLIC VOMITING SYNDROME
     Route: 065
  5. NORTRIPTYLINE [Concomitant]
     Active Substance: NORTRIPTYLINE
     Indication: CYCLIC VOMITING SYNDROME
     Route: 065

REACTIONS (6)
  - Blood magnesium decreased [Recovered/Resolved]
  - Electrocardiogram QT prolonged [Recovered/Resolved]
  - Blood potassium decreased [Recovered/Resolved]
  - Mitral valve incompetence [Recovered/Resolved]
  - Nausea [Recovered/Resolved]
  - Vomiting [Recovered/Resolved]

NARRATIVE: CASE EVENT DATE: 20171226
